FAERS Safety Report 24612262 (Version 1)
Quarter: 2024Q4

REPORT INFORMATION
  Report Type: Spontaneous
  Country: AT (occurrence: AT)
  Receive Date: 20241113
  Receipt Date: 20241113
  Transmission Date: 20250115
  Serious: Yes (Other)
  Sender: AMGEN
  Company Number: AT-AMGEN-AUTSP2024120562

PATIENT
  Age: 52 Year
  Sex: Male

DRUGS (14)
  1. VECTIBIX [Suspect]
     Active Substance: PANITUMUMAB
     Indication: Colorectal cancer metastatic
     Dosage: UNK (6 CYCLES)
     Route: 065
     Dates: start: 202202, end: 202208
  2. VECTIBIX [Suspect]
     Active Substance: PANITUMUMAB
     Dosage: UNK (8 CYCLES)
     Route: 065
     Dates: start: 202208, end: 202305
  3. VECTIBIX [Suspect]
     Active Substance: PANITUMUMAB
     Dosage: UNK UNK, Q2WK
     Route: 065
     Dates: start: 202302
  4. VECTIBIX [Suspect]
     Active Substance: PANITUMUMAB
     Dosage: UNK (8 CYCLES)
     Route: 065
     Dates: start: 202308, end: 202311
  5. VECTIBIX [Suspect]
     Active Substance: PANITUMUMAB
     Dosage: UNK UNK, Q2WK
     Route: 065
     Dates: end: 202402
  6. LEUCOVORIN [Suspect]
     Active Substance: LEUCOVORIN\LEUCOVORIN CALCIUM
     Indication: Colorectal cancer metastatic
     Dosage: UNK (6 CYCLES)
     Route: 065
     Dates: start: 202202, end: 202208
  7. LEUCOVORIN [Suspect]
     Active Substance: LEUCOVORIN\LEUCOVORIN CALCIUM
     Dosage: UNK (8 CYCLE)
     Route: 065
     Dates: start: 202208, end: 202305
  8. LEUCOVORIN [Suspect]
     Active Substance: LEUCOVORIN\LEUCOVORIN CALCIUM
     Dosage: UNK
     Route: 065
     Dates: start: 202308, end: 202311
  9. FLUOROURACIL [Suspect]
     Active Substance: FLUOROURACIL
     Indication: Colorectal cancer metastatic
     Dosage: UNK (6CYCLE)
     Route: 065
     Dates: start: 202202, end: 202208
  10. FLUOROURACIL [Suspect]
     Active Substance: FLUOROURACIL
     Dosage: UNK (8 CYCLE)
     Route: 065
     Dates: start: 202208, end: 202305
  11. FLUOROURACIL [Suspect]
     Active Substance: FLUOROURACIL
     Dosage: UNK
     Route: 065
     Dates: start: 202308, end: 202311
  12. OXALIPLATIN [Suspect]
     Active Substance: OXALIPLATIN
     Indication: Colorectal cancer metastatic
     Dosage: UNK (6 CYCLE)
     Route: 065
     Dates: start: 202202, end: 202208
  13. IRINOTECAN [Suspect]
     Active Substance: IRINOTECAN
     Indication: Colorectal cancer metastatic
     Dosage: UNK (8 CYCLE)
     Route: 065
     Dates: start: 202208, end: 202305
  14. IRINOTECAN [Suspect]
     Active Substance: IRINOTECAN
     Dosage: UNK
     Route: 065
     Dates: start: 202308, end: 202311

REACTIONS (8)
  - Metastases to lung [Unknown]
  - Dermatitis acneiform [Unknown]
  - Infection [Unknown]
  - Anaemia [Unknown]
  - Diversion colitis [Unknown]
  - Haemorrhage [Unknown]
  - Fistula [Unknown]
  - Abscess [Unknown]

NARRATIVE: CASE EVENT DATE: 20230801
